FAERS Safety Report 7686086-X (Version None)
Quarter: 2011Q3

REPORT INFORMATION
  Report Type: 
  Country: None (occurrence: None)
  Receive Date: 20110816
  Receipt Date: 20110719
  Transmission Date: 20111222
  Serious: No
  Sender: FDA-Public Use
  Company Number: US-PFIZER INC-2011120209

PATIENT
  Age: 46 Year
  Sex: Female
  Weight: 58.957 kg

DRUGS (1)
  1. CHAPSTICK FRESH EFFECTS [Suspect]
     Indication: LIP DRY
     Dosage: UNK
     Dates: start: 20110530, end: 20110531

REACTIONS (3)
  - ORAL HERPES [None]
  - APPLICATION SITE VESICLES [None]
  - LIP DISORDER [None]
